FAERS Safety Report 18090856 (Version 1)
Quarter: 2020Q3

REPORT INFORMATION
  Report Type: Spontaneous
  Country: SK (occurrence: SK)
  Receive Date: 20200730
  Receipt Date: 20200730
  Transmission Date: 20201103
  Serious: Yes (Other)
  Sender: FDA-Public Use
  Company Number: SK-ACCORD-193350

PATIENT
  Sex: Male
  Weight: 1.15 kg

DRUGS (8)
  1. ERYTHROPOIETIN HUMAN [Suspect]
     Active Substance: ERYTHROPOIETIN
     Indication: RESPIRATORY TRACT INFECTION
     Route: 064
  2. MAGNESIUM LACTATE [Suspect]
     Active Substance: MAGNESIUM LACTATE
     Indication: DIABETIC NEPHROPATHY
     Route: 064
  3. NADROPARIN [Suspect]
     Active Substance: NADROPARIN
     Indication: DIABETIC NEPHROPATHY
     Dosage: 0.4 ML
     Route: 064
  4. AMLODIPINE [Suspect]
     Active Substance: AMLODIPINE BESYLATE
     Indication: DIABETIC NEPHROPATHY
     Route: 064
  5. FUROSEMIDE. [Suspect]
     Active Substance: FUROSEMIDE
     Indication: DIABETIC NEPHROPATHY
     Route: 064
  6. INSULIN [Suspect]
     Active Substance: INSULIN NOS
     Indication: DIABETIC NEPHROPATHY
     Route: 064
  7. ALBUMIN [Suspect]
     Active Substance: ALBUMIN HUMAN
     Indication: DIABETIC NEPHROPATHY
     Route: 064
  8. METHYLDOPA. [Suspect]
     Active Substance: METHYLDOPA
     Indication: DIABETIC NEPHROPATHY
     Route: 064

REACTIONS (4)
  - Atrial septal defect [Unknown]
  - Foetal exposure during pregnancy [Unknown]
  - Umbilical hernia [Unknown]
  - Neonatal respiratory distress syndrome [Unknown]
